FAERS Safety Report 6845853-2 (Version None)
Quarter: 2010Q3

REPORT INFORMATION
  Report Type: 
  Country: None (occurrence: None)
  Receive Date: 20100715
  Receipt Date: 20070829
  Transmission Date: 20110219
  Serious: No
  Sender: FDA-Public Use
  Company Number: US-PFIZER INC-2007072000

PATIENT
  Sex: Male
  Weight: 71.7 kg

DRUGS (9)
  1. CHANTIX [Suspect]
     Indication: SMOKING CESSATION THERAPY
     Dates: start: 20070701, end: 20070801
  2. LOVASTATIN [Concomitant]
  3. PREVACID [Concomitant]
  4. KLONOPIN [Concomitant]
  5. DILTIAZEM [Concomitant]
  6. SEROQUEL [Concomitant]
  7. ALL OTHER THERAPEUTIC PRODUCTS [Concomitant]
  8. ACETYLSALICYLIC ACID [Concomitant]
  9. PLAVIX [Concomitant]

REACTIONS (1)
  - NAUSEA [None]
